FAERS Safety Report 23891656 (Version 3)
Quarter: 2025Q3

REPORT INFORMATION
  Report Type: Report from Study
  Country: US (occurrence: US)
  Receive Date: 20240524
  Receipt Date: 20250816
  Transmission Date: 20251021
  Serious: No
  Sender: ALEXION PHARMACEUTICALS
  Company Number: US-ALXN-202405USA001138US

PATIENT
  Age: 13 Year
  Sex: Male

DRUGS (1)
  1. STRENSIQ [Suspect]
     Active Substance: ASFOTASE ALFA
     Indication: Phosphorus metabolism disorder
     Dosage: 47 MILLIGRAM, SIX TIMES/WEEK
     Route: 065

REACTIONS (9)
  - Alanine aminotransferase decreased [Unknown]
  - Pain in extremity [Unknown]
  - Injection site hypertrophy [Unknown]
  - Malaise [Unknown]
  - Conjunctival deposit [Unknown]
  - Vitamin D decreased [Unknown]
  - Skin atrophy [Unknown]
  - Osteopenia [Unknown]
  - Asthenia [Unknown]

NARRATIVE: CASE EVENT DATE: 20240422
